FAERS Safety Report 18544988 (Version 1)
Quarter: 2020Q4

REPORT INFORMATION
  Report Type: Other
  Country: US (occurrence: US)
  Receive Date: 20201125
  Receipt Date: 20201125
  Transmission Date: 20210114
  Serious: Yes (Other)
  Sender: FDA-Public Use
  Company Number: US-ROCHE-2716059

PATIENT
  Age: 58 Year
  Sex: Female

DRUGS (32)
  1. ZOFRAN [Concomitant]
     Active Substance: ONDANSETRON HYDROCHLORIDE
     Indication: PREMEDICATION
     Route: 042
     Dates: start: 20201026
  2. BREO ELLIPTA [Concomitant]
     Active Substance: FLUTICASONE FUROATE\VILANTEROL TRIFENATATE
     Indication: ASTHMA
     Route: 055
     Dates: start: 2017
  3. DILTIZEM [Concomitant]
     Dosage: IN THE AFTERNOON
     Route: 048
     Dates: start: 2014
  4. LEVOCETIRIZIN [Concomitant]
     Active Substance: LEVOCETIRIZINE DIHYDROCHLORIDE
     Indication: HYPERSENSITIVITY
     Dosage: TAKES IN THE EVENING
     Route: 048
     Dates: start: 2019
  5. ALDACTONE [Concomitant]
     Active Substance: SPIRONOLACTONE
     Indication: URINARY INCONTINENCE
     Route: 048
     Dates: start: 202009
  6. SYNTHROID [Concomitant]
     Active Substance: LEVOTHYROXINE SODIUM
     Indication: HYPOTHYROIDISM
     Dosage: IN THE MORNING ON EMPTY STOMACH
     Route: 048
     Dates: start: 198708
  7. NYSTATIN. [Concomitant]
     Active Substance: NYSTATIN
     Route: 061
     Dates: start: 2015
  8. KENALOG [Concomitant]
     Active Substance: TRIAMCINOLONE ACETONIDE
     Indication: SKIN IRRITATION
     Dosage: APPLY TO EFFECTIVE AREAS
     Route: 061
     Dates: start: 202005
  9. KENALOG [Concomitant]
     Active Substance: TRIAMCINOLONE ACETONIDE
     Indication: DRY SKIN
  10. ALBUTEROL SULFATE. [Concomitant]
     Active Substance: ALBUTEROL SULFATE
     Indication: ASTHMA
     Dosage: AS NEEDED FOR ASTHMA
     Route: 055
     Dates: start: 2004
  11. FLONASE [Concomitant]
     Active Substance: FLUTICASONE PROPIONATE
     Indication: HYPERSENSITIVITY
     Route: 045
     Dates: start: 2007
  12. TYLENOL [Concomitant]
     Active Substance: ACETAMINOPHEN
     Indication: PREMEDICATION
     Route: 048
     Dates: start: 20201026
  13. GABAPENTIN. [Concomitant]
     Active Substance: GABAPENTIN
     Indication: MUSCLE SPASMS
     Route: 048
     Dates: start: 2014
  14. CYCLOBENZAPRINE. [Concomitant]
     Active Substance: CYCLOBENZAPRINE
     Indication: MUSCLE SPASMS
     Dosage: AT BEDTIME
     Route: 048
     Dates: start: 2014
  15. VITAMIN D3 [Concomitant]
     Active Substance: CHOLECALCIFEROL
     Indication: VITAMIN D DEFICIENCY
     Route: 048
     Dates: start: 2015
  16. BENADRYL [Concomitant]
     Active Substance: DIPHENHYDRAMINE HYDROCHLORIDE
     Indication: PREMEDICATION
     Route: 042
  17. AZELASTINE. [Concomitant]
     Active Substance: AZELASTINE HYDROCHLORIDE
     Indication: ASTHMA
     Dosage: 2 SPRAYS IN EACH NOSTRIL TWICE A DAY
     Route: 045
     Dates: start: 202008
  18. PREMARIN VAGINAL [Concomitant]
     Active Substance: ESTROGENS, CONJUGATED
     Route: 067
     Dates: start: 200801
  19. IPRATROPII BROMIDUM [Concomitant]
     Indication: WHEEZING
     Dosage: AT NIGHT
     Route: 055
     Dates: start: 202008
  20. LACTULOSE. [Concomitant]
     Active Substance: LACTULOSE
     Indication: CONSTIPATION
     Dosage: AS NEEDED FOR SEVERE CONSTIPATION
     Route: 048
     Dates: start: 2015
  21. LINZESS [Concomitant]
     Active Substance: LINACLOTIDE
     Dosage: TAKES IN THE MORNING
     Route: 048
     Dates: start: 2015
  22. OXYCODONE [Concomitant]
     Active Substance: OXYCODONE
     Indication: ARTHRITIS
     Route: 048
     Dates: start: 2016
  23. SENNA [Concomitant]
     Active Substance: SENNA LEAF\SENNOSIDES\SENNOSIDES A AND B
     Indication: CONSTIPATION
     Route: 048
     Dates: start: 2005
  24. OCREVUS [Suspect]
     Active Substance: OCRELIZUMAB
     Indication: RELAPSING-REMITTING MULTIPLE SCLEROSIS
     Route: 042
     Dates: start: 20201026
  25. AMANTADINE. [Concomitant]
     Active Substance: AMANTADINE HYDROCHLORIDE
     Indication: FATIGUE
     Dosage: AT 7AM AND 2PM
     Route: 048
     Dates: start: 2014
  26. FIBERCON [Concomitant]
     Active Substance: CALCIUM POLYCARBOPHIL
     Indication: CONSTIPATION
     Dosage: 2-625MG PILLS TWICE A DAY
     Route: 048
     Dates: start: 2012
  27. GINKGO BILOBA [Concomitant]
     Active Substance: GINKGO
     Route: 048
     Dates: start: 2003
  28. PROTONIX [Concomitant]
     Active Substance: PANTOPRAZOLE SODIUM
     Indication: GASTRIC ULCER
     Route: 048
     Dates: start: 2007
  29. POTASSIUM CHLORIDE. [Concomitant]
     Active Substance: POTASSIUM CHLORIDE
     Indication: BLOOD POTASSIUM DECREASED
     Route: 048
     Dates: start: 202006
  30. ATORVASTATIN [Concomitant]
     Active Substance: ATORVASTATIN
     Indication: BLOOD CHOLESTEROL INCREASED
     Dosage: AT BEDTIME
     Route: 048
     Dates: start: 2014
  31. MONTELUKAST [Concomitant]
     Active Substance: MONTELUKAST SODIUM
     Indication: ASTHMA
     Route: 048
     Dates: start: 2006
  32. STARLIX [Concomitant]
     Active Substance: NATEGLINIDE
     Indication: DIABETES MELLITUS
     Dosage: TAKES AT BREAKFAST AND LUNCH
     Route: 048
     Dates: start: 2015

REACTIONS (17)
  - Sneezing [Not Recovered/Not Resolved]
  - Seizure [Recovered/Resolved]
  - Omphalorrhexis [Not Recovered/Not Resolved]
  - Memory impairment [Not Recovered/Not Resolved]
  - Hot flush [Recovered/Resolved]
  - Cough [Not Recovered/Not Resolved]
  - Dry mouth [Not Recovered/Not Resolved]
  - Pyrexia [Recovered/Resolved]
  - Muscle spasms [Recovered/Resolved with Sequelae]
  - Headache [Recovered/Resolved]
  - Lymphadenopathy [Not Recovered/Not Resolved]
  - Blood glucose decreased [Recovered/Resolved]
  - Dysuria [Recovered/Resolved]
  - Throat tightness [Recovered/Resolved]
  - Nausea [Not Recovered/Not Resolved]
  - Thirst [Not Recovered/Not Resolved]
  - Cellulitis [Unknown]

NARRATIVE: CASE EVENT DATE: 20201026
